FAERS Safety Report 5918432-9 (Version None)
Quarter: 2008Q4

REPORT INFORMATION
  Report Type: 
  Country: None (occurrence: None)
  Receive Date: 20081015
  Receipt Date: 20081009
  Transmission Date: 20090506
  Serious: Yes (Death, Other)
  Sender: FDA-Public Use
  Company Number: US-TEVA-178522USA

PATIENT
  Sex: Female

DRUGS (3)
  1. COPAXONE [Suspect]
     Indication: MULTIPLE SCLEROSIS
     Route: 058
     Dates: start: 19990101, end: 20080423
  2. INTERFERON BETA [Suspect]
     Dates: start: 20040101, end: 20060101
  3. INTERFERON BETA-1A [Suspect]
     Dates: start: 20060101, end: 20070101

REACTIONS (1)
  - LUNG NEOPLASM MALIGNANT [None]
